FAERS Safety Report 4767016-7 (Version None)
Quarter: 2005Q3

REPORT INFORMATION
  Report Type: 
  Country: None (occurrence: None)
  Receive Date: 20050908
  Receipt Date: 20050812
  Transmission Date: 20060218
  Serious: Yes (Hospitalization)
  Sender: FDA-Public Use
  Company Number: 6016653

PATIENT
  Age: 86 Year
  Sex: Female

DRUGS (6)
  1. DAPA-TABS (TABLET) (INDAPAMIDE) [Suspect]
     Indication: ESSENTIAL HYPERTENSION
     Dosage: ORAL
     Route: 048
     Dates: end: 20030715
  2. VIOXX [Suspect]
     Indication: OSTEOARTHRITIS
     Dosage: 12,5 MG,ORAL (12,5 MG,1 D),ORAL
     Route: 048
     Dates: start: 20020903, end: 20030715
  3. ASTRIX (100 (100 MG, CAPSULE) (ACETYLSALICYLIC ACID) [Suspect]
     Indication: DRUG USE FOR UNKNOWN INDICATION
     Dosage: (100 MG,1 D), ORAL
     Route: 048
     Dates: end: 20030715
  4. COVERSYL [Concomitant]
  5. NORVASC [Concomitant]
  6. PANADEINE FORTE (CODEINE PHOSPHATE, PARACETAMOL) [Concomitant]

REACTIONS (1)
  - GASTRIC ULCER [None]
